FAERS Safety Report 6422292-X (Version None)
Quarter: 2009Q4

REPORT INFORMATION
  Report Type: 
  Country: None (occurrence: None)
  Receive Date: 20091030
  Receipt Date: 20091020
  Transmission Date: 20100525
  Serious: Yes (Hospitalization, Other)
  Sender: FDA-Public Use
  Company Number: US-PFIZER INC-2009288478

PATIENT
  Sex: Female
  Weight: 68.027 kg

DRUGS (7)
  1. LYRICA [Suspect]
     Indication: NEUROPATHY PERIPHERAL
     Dosage: FREQUENCY: 3X/DAY,
     Route: 048
     Dates: start: 20080701, end: 20090901
  2. LISINOPRIL [Concomitant]
     Dosage: 10 MG, UNK
  3. GLIPIZIDE [Concomitant]
     Dosage: 10 MG, 1X/DAY
  4. METFORMIN [Concomitant]
     Dosage: 750 MG, 1X/DAY
  5. SITAGLIPTIN [Concomitant]
     Dosage: 100 MG, UNK
  6. CALTRATE [Concomitant]
     Indication: BONE DISORDER
     Dosage: FREQUENCY: 2X/DAY,
  7. TERBINAFINE HCL [Concomitant]
     Dosage: 250 MG, UNK

REACTIONS (9)
  - AGEUSIA [None]
  - ANOSMIA [None]
  - DYSGEUSIA [None]
  - EYE IRRITATION [None]
  - FALL [None]
  - HUNGER [None]
  - MEMORY IMPAIRMENT [None]
  - NASAL DISCOMFORT [None]
  - SKULL FRACTURE [None]
